FAERS Safety Report 8501780-6 (Version None)
Quarter: 2012Q3

REPORT INFORMATION
  Report Type: 
  Country: None (occurrence: None)
  Receive Date: 20120705
  Receipt Date: 20120705
  Transmission Date: 20120928
  Serious: Yes (Hospitalization)
  Sender: FDA-Public Use
  Company Number: None

PATIENT
  Age: 35 Year
  Sex: Female
  Weight: 86.1834 kg

DRUGS (1)
  1. EDARBYCLOR [Suspect]
     Indication: HYPERTENSION
     Dosage: 40/12.5MG 1 DAILY PO
     Route: 048
     Dates: start: 20120622, end: 20120626

REACTIONS (5)
  - DIZZINESS [None]
  - ASTHENIA [None]
  - MOVEMENT DISORDER [None]
  - BLOOD POTASSIUM DECREASED [None]
  - NAUSEA [None]
